FAERS Safety Report 4609896-1 (Version None)
Quarter: 2005Q1

REPORT INFORMATION
  Report Type: 
  Country: None (occurrence: None)
  Receive Date: 20050314
  Receipt Date: 20050228
  Transmission Date: 20050727
  Serious: No
  Sender: FDA-Public Use
  Company Number: 02100-JPN-05-0094

PATIENT
  Age: 64 Year
  Sex: Male

DRUGS (3)
  1. CILOSTAZOL [Suspect]
     Indication: CEREBRAL INFARCTION
     Dosage: 200 MG; ORAL
     Route: 048
     Dates: start: 20040224, end: 20040718
  2. ASPIRIN [Suspect]
     Dosage: 100 MG; ORAL
     Route: 048
     Dates: start: 20040224
  3. TEPRENONE [Concomitant]

REACTIONS (6)
  - BLOOD GLUCOSE INCREASED [None]
  - CAROTID ARTERY STENOSIS [None]
  - CEREBRAL INFARCTION [None]
  - HAEMATOCRIT DECREASED [None]
  - INTRAVENTRICULAR HAEMORRHAGE [None]
  - PLATELET COUNT DECREASED [None]
